FAERS Safety Report 15167056 (Version 2)
Quarter: 2020Q2

REPORT INFORMATION
  Report Type: Spontaneous
  Country: NL (occurrence: NL)
  Receive Date: 20180719
  Receipt Date: 20200622
  Transmission Date: 20200713
  Serious: Yes (Death, Life-Threatening, Hospitalization, Disabling)
  Sender: FDA-Public Use
  Company Number: PHHY2018NL049553

PATIENT
  Age: 82 Year
  Sex: Male

DRUGS (2)
  1. METHOTREXATE (METHOTREXATE SODIUM) [Suspect]
     Active Substance: METHOTREXATE SODIUM
     Indication: RHEUMATOID ARTHRITIS
     Dosage: 30 MG, QW (30MG, 1X/W)
     Route: 058
     Dates: start: 20171211, end: 20180313
  2. HYDROXYCHLOROQUINE [Concomitant]
     Active Substance: HYDROXYCHLOROQUINE
     Indication: PRODUCT USED FOR UNKNOWN INDICATION
     Dosage: 200 MG, Q12H (200MG, 2X/D)
     Route: 048
     Dates: start: 20171018

REACTIONS (8)
  - Fatigue [Fatal]
  - Decreased appetite [Fatal]
  - Multiple organ dysfunction syndrome [Fatal]
  - Pyrexia [Fatal]
  - Malaise [Fatal]
  - Herpes simplex pneumonia [Fatal]
  - Dyspnoea [Fatal]
  - Nausea [Fatal]

NARRATIVE: CASE EVENT DATE: 20180313
